FAERS Safety Report 19034379 (Version 1)
Quarter: 2021Q1

REPORT INFORMATION
  Report Type: Spontaneous
  Country: JP (occurrence: JP)
  Receive Date: 20210319
  Receipt Date: 20210319
  Transmission Date: 20210420
  Serious: Yes (Other)
  Sender: FDA-Public Use
  Company Number: JP-DSJP-DSJ-2020-128552

PATIENT
  Age: 72 Year

DRUGS (1)
  1. ENHERTU [Suspect]
     Active Substance: FAM-TRASTUZUMAB DERUXTECAN-NXKI
     Indication: BREAST CANCER
     Dosage: UNK
     Route: 065
     Dates: start: 20200916, end: 20210203

REACTIONS (2)
  - Malaise [Recovering/Resolving]
  - Arthritis bacterial [Unknown]

NARRATIVE: CASE EVENT DATE: 20200918
